FAERS Safety Report 21469105 (Version 2)
Quarter: 2022Q4

REPORT INFORMATION
  Report Type: Report from Study
  Country: US (occurrence: US)
  Receive Date: 20221018
  Receipt Date: 20221020
  Transmission Date: 20230112
  Serious: Yes (Death, Hospitalization)
  Sender: FDA-Public Use
  Company Number: US-ABBVIE-4163098

PATIENT
  Age: 82 Year
  Sex: Male

DRUGS (1)
  1. IMBRUVICA [Suspect]
     Active Substance: IBRUTINIB
     Indication: Chronic lymphocytic leukaemia
     Route: 048
     Dates: start: 20210311, end: 20221009

REACTIONS (5)
  - Chronic lymphocytic leukaemia [Fatal]
  - Hypotension [Unknown]
  - Asthenia [Unknown]
  - Gait inability [Unknown]
  - Hypophagia [Unknown]

NARRATIVE: CASE EVENT DATE: 20220917
